FAERS Safety Report 5212618-7 (Version None)
Quarter: 2006Q4

REPORT INFORMATION
  Report Type: 
  Country: None (occurrence: None)
  Receive Date: 20061102
  Receipt Date: 20060417
  Transmission Date: 20070319
  Serious: Yes (Other)
  Sender: FDA-Public Use
  Company Number: 26824

PATIENT
  Age: 77 Year
  Sex: Female
  Weight: 52.6173 kg

DRUGS (4)
  1. METHOTREXATE [Suspect]
     Indication: RHEUMATOID ARTHRITIS
     Dosage: 0.3ML/IM/WKLY
     Route: 030
     Dates: start: 20060413
  2. CLONAZEPAM [Concomitant]
  3. DARVOCET [Concomitant]
  4. PREDNISONE [Concomitant]

REACTIONS (1)
  - HEADACHE [None]
